FAERS Safety Report 6515697-X (Version None)
Quarter: 2009Q4

REPORT INFORMATION
  Report Type: 
  Country: None (occurrence: None)
  Receive Date: 20091211
  Receipt Date: 20090629
  Transmission Date: 20100525
  Serious: Yes (Death)
  Sender: FDA-Public Use
  Company Number: 640911

PATIENT
  Age: 28 Year
  Sex: Male

DRUGS (2)
  1. DIAZEPAM [Suspect]
     Indication: SEDATION
     Dosage: 10 MG INTRAVENOUS
     Route: 042
  2. ASPIRIN [Suspect]
     Indication: DRUG USE FOR UNKNOWN INDICATION

REACTIONS (1)
  - RESPIRATORY DISTRESS [None]
